FAERS Safety Report 4426110-0 (Version None)
Quarter: 2004Q3

REPORT INFORMATION
  Report Type: 
  Country: None (occurrence: None)
  Receive Date: 20040811
  Receipt Date: 20040727
  Transmission Date: 20050211
  Serious: Yes (Other)
  Sender: FDA-Public Use
  Company Number: USA040773852

PATIENT
  Age: 62 Year
  Sex: Female

DRUGS (19)
  1. FORTEO [Suspect]
     Indication: OSTEOPOROSIS
     Dosage: 20 UG DAY
     Dates: start: 20030901, end: 20040101
  2. FOSAMAX [Concomitant]
  3. DILANTIN [Concomitant]
  4. ZOLOFT [Concomitant]
  5. MULTIVITAMINS NOS (MULTIVITAMINS NOS) [Concomitant]
  6. OSCAL (CALCIUM CARBONATE) [Concomitant]
  7. SELENIUM TRACE METAL ADDITIVE [Concomitant]
  8. VITAMIN C [Concomitant]
  9. FISH OIL [Concomitant]
  10. IRON [Concomitant]
  11. ACETAMINOPHEN [Concomitant]
  12. ASPIRIN [Concomitant]
  13. MAGNESIUM [Concomitant]
  14. VITAMIN B-12 [Concomitant]
  15. BIOTIN [Concomitant]
  16. VITAMIN D [Concomitant]
  17. VITAMIN E [Concomitant]
  18. REMIFEMIN (CIMICIFUGA RACEMOSA ROOT) [Concomitant]
  19. VENASTAT (AESCULUS HIPPOCASTANUM SEED) [Concomitant]

REACTIONS (1)
  - CERVIX CARCINOMA [None]
